FAERS Safety Report 7085811-9 (Version None)
Quarter: 2010Q4

REPORT INFORMATION
  Report Type: 
  Country: None (occurrence: None)
  Receive Date: 20101105
  Receipt Date: 20101006
  Transmission Date: 20110411
  Serious: No
  Sender: FDA-Public Use
  Company Number: US-PFIZER INC-2010091424

PATIENT
  Sex: Female
  Weight: 88 kg

DRUGS (9)
  1. LIPITOR [Suspect]
     Indication: BLOOD CHOLESTEROL INCREASED
     Dosage: 10 MG, DAILY
     Route: 048
     Dates: start: 20090101
  2. DIOVAN HCT [Concomitant]
     Indication: HYPERTENSION
     Dosage: 320 MG, UNK
  3. SPIRIVA [Concomitant]
     Indication: ASTHMA
     Dosage: UNK
  4. ADVAIR DISKUS 100/50 [Concomitant]
     Indication: ASTHMA
     Dosage: UNK
  5. SYNTHROID [Concomitant]
     Indication: HYPOTHYROIDISM
     Dosage: 0.15 MG, UNK
  6. MONTELUKAST [Concomitant]
     Dosage: 10 MG, UNK
  7. CLARINEX [Concomitant]
     Dosage: 5 MG, UNK
  8. NORVASC [Concomitant]
  9. MAXAIR [Concomitant]
     Route: 055

REACTIONS (3)
  - ARTHRALGIA [None]
  - MYALGIA [None]
  - PAIN IN EXTREMITY [None]
